FAERS Safety Report 25034163 (Version 1)
Quarter: 2025Q1

REPORT INFORMATION
  Report Type: Spontaneous
  Country: AE (occurrence: AE)
  Receive Date: 20250304
  Receipt Date: 20250304
  Transmission Date: 20250409
  Serious: Yes (Life-Threatening, Hospitalization)
  Sender: ARGENX BVBA
  Company Number: AE-ARGENX-2025-ARGX-AE002724

PATIENT

DRUGS (3)
  1. VYVGART [Suspect]
     Active Substance: EFGARTIGIMOD ALFA-FCAB
     Indication: Myasthenia gravis
     Dosage: 400 MG, 1/WEEK, (IV INFUSION EVERY WEEK FOR 4 WEEKS (1 MONTH))
     Route: 042
     Dates: start: 202501
  2. CORTICOSTEROID NOS [Concomitant]
     Active Substance: CORTICOSTEROID NOS
     Indication: Product used for unknown indication
     Route: 065
  3. CELLCEPT [Concomitant]
     Active Substance: MYCOPHENOLATE MOFETIL
     Indication: Product used for unknown indication
     Route: 065

REACTIONS (1)
  - Bulbar palsy [Unknown]

NARRATIVE: CASE EVENT DATE: 20250201
